FAERS Safety Report 20516772 (Version 1)
Quarter: 2022Q1

REPORT INFORMATION
  Report Type: Spontaneous
  Country: FR (occurrence: FR)
  Receive Date: 20220225
  Receipt Date: 20220225
  Transmission Date: 20220423
  Serious: Yes (Other)
  Sender: FDA-Public Use
  Company Number: None

PATIENT
  Age: 22 Year
  Sex: Female

DRUGS (8)
  1. ARIPIPRAZOLE [Suspect]
     Active Substance: ARIPIPRAZOLE
     Indication: Product used for unknown indication
     Dosage: 20 MILLIGRAM DAILY; 2 X 10MG IN THE MORNING
     Route: 048
     Dates: start: 2021
  2. PREGABALIN [Suspect]
     Active Substance: PREGABALIN
     Indication: Poisoning deliberate
     Dosage: 100 MILLIGRAM DAILY; 50MG MIDDAY, 50MG EVENING,100 MG
     Route: 048
     Dates: start: 2021
  3. CLORAZEPATE DIPOTASSIUM [Suspect]
     Active Substance: CLORAZEPATE DIPOTASSIUM
     Indication: Product used for unknown indication
     Dosage: 50 MILLIGRAM DAILY; 10MG IN THE MORNING, 10MG AT NOON, 20MG IN THE EVENING, 10MG AT BEDTIME, 50 MG
     Route: 048
     Dates: start: 2021
  4. COCAINE [Suspect]
     Active Substance: COCAINE
     Dosage: 4 LINES
     Route: 045
     Dates: start: 20210905, end: 20210905
  5. PIPAMPERONE [Suspect]
     Active Substance: PIPAMPERONE
     Indication: Product used for unknown indication
     Dosage: 80 MILLIGRAM DAILY; 20MG IN THE MORNING, 20MG IN THE AFTERNOON, 40MG IN THE EVENING, 80 MG
     Route: 048
     Dates: start: 2021
  6. TRIMEPRAZINE [Suspect]
     Active Substance: TRIMEPRAZINE
     Indication: Product used for unknown indication
     Dosage: 20 MG
     Route: 048
     Dates: start: 2021
  7. BUSPIRONE HYDROCHLORIDE [Suspect]
     Active Substance: BUSPIRONE HYDROCHLORIDE
     Indication: Product used for unknown indication
     Dosage: 40 MILLIGRAM DAILY; 10MG IN THE MORNING, 10MG AT NOON, 20MG IN THE EVENING, 40 MG
     Route: 048
     Dates: start: 2021
  8. LITHIUM [Suspect]
     Active Substance: LITHIUM
     Indication: Product used for unknown indication
     Dosage: 250 MILLIGRAM DAILY; 250MG IN THE EVENING
     Route: 048
     Dates: start: 2021

REACTIONS (2)
  - Depressed level of consciousness [Recovered/Resolved]
  - Drug abuse [Not Recovered/Not Resolved]

NARRATIVE: CASE EVENT DATE: 20210905
